FAERS Safety Report 16696799 (Version 1)
Quarter: 2019Q3

REPORT INFORMATION
  Report Type: Spontaneous
  Country: US (occurrence: US)
  Receive Date: 20190812
  Receipt Date: 20190812
  Transmission Date: 20191004
  Serious: No
  Sender: FDA-Public Use
  Company Number: None

PATIENT
  Sex: Male

DRUGS (1)
  1. CLONIDINE 0.1MG [Suspect]
     Active Substance: CLONIDINE

REACTIONS (4)
  - Cognitive disorder [None]
  - Headache [None]
  - Dizziness [None]
  - Sedation complication [None]
